FAERS Safety Report 7237095-6 (Version None)
Quarter: 2010Q4

REPORT INFORMATION
  Report Type: 
  Country: None (occurrence: None)
  Receive Date: 20101130
  Receipt Date: 20090803
  Transmission Date: 20110411
  Serious: Yes (Hospitalization)
  Sender: FDA-Public Use
  Company Number: 2009SP020359

PATIENT
  Age: 43 Year
  Sex: Female
  Weight: 78.4723 kg

DRUGS (11)
  1. NUVARING [Suspect]
     Indication: PRODUCT USED FOR UNKNOWN INDICATION
     Dates: start: 20050201, end: 20060401
  2. PRILOSEC [Concomitant]
  3. PREVACID [Concomitant]
  4. MOTRIN [Concomitant]
  5. TYLENOL-500 [Concomitant]
  6. PHENTERMINE HCL [Concomitant]
  7. CELEBREX [Concomitant]
  8. ULTRAM [Concomitant]
  9. MOBIC [Concomitant]
  10. MOTRIN [Concomitant]
  11. TYLENOL [Concomitant]

REACTIONS (5)
  - LYMPHADENOPATHY [None]
  - PHLEBITIS [None]
  - PULMONARY EMBOLISM [None]
  - SUPERIOR SAGITTAL SINUS THROMBOSIS [None]
  - VENOUS THROMBOSIS [None]
